FAERS Safety Report 19126182 (Version 88)
Quarter: 2025Q2

REPORT INFORMATION
  Report Type: Spontaneous
  Country: CA (occurrence: CA)
  Receive Date: 20210412
  Receipt Date: 20250424
  Transmission Date: 20250716
  Serious: Yes (Death, Life-Threatening, Hospitalization, Disabling, Congenital Anomaly, Other)
  Sender: BAUSCH AND LOMB
  Company Number: CA-BAUSCH-BL-2017-018617

PATIENT
  Age: 43 Year
  Sex: Female
  Weight: 97 kg

DRUGS (63)
  1. ATIVAN [Suspect]
     Active Substance: LORAZEPAM
     Indication: Rheumatoid arthritis
     Route: 065
  2. ATIVAN [Suspect]
     Active Substance: LORAZEPAM
     Route: 065
  3. ARESTIN [Suspect]
     Active Substance: MINOCYCLINE HYDROCHLORIDE
     Indication: Product used for unknown indication
     Route: 065
  4. ARESTIN [Suspect]
     Active Substance: MINOCYCLINE HYDROCHLORIDE
  5. ARESTIN [Suspect]
     Active Substance: MINOCYCLINE HYDROCHLORIDE
  6. ARESTIN [Suspect]
     Active Substance: MINOCYCLINE HYDROCHLORIDE
  7. HYDROCORTISONE BUTYRATE [Suspect]
     Active Substance: HYDROCORTISONE BUTYRATE
     Indication: Rheumatoid arthritis
     Route: 050
  8. MINOCYCLINE HYDROCHLORIDE [Suspect]
     Active Substance: MINOCYCLINE HYDROCHLORIDE
     Indication: Product used for unknown indication
     Route: 065
  9. MINOCYCLINE HYDROCHLORIDE [Suspect]
     Active Substance: MINOCYCLINE HYDROCHLORIDE
     Route: 065
  10. MINOCYCLINE HYDROCHLORIDE [Suspect]
     Active Substance: MINOCYCLINE HYDROCHLORIDE
     Route: 065
  11. MINOCYCLINE HYDROCHLORIDE [Suspect]
     Active Substance: MINOCYCLINE HYDROCHLORIDE
  12. DILTIAZEM HYDROCHLORIDE [Suspect]
     Active Substance: DILTIAZEM HYDROCHLORIDE
     Indication: Rheumatoid arthritis
     Route: 065
  13. DILTIAZEM HYDROCHLORIDE [Suspect]
     Active Substance: DILTIAZEM HYDROCHLORIDE
     Route: 065
  14. DILTIAZEM HYDROCHLORIDE [Suspect]
     Active Substance: DILTIAZEM HYDROCHLORIDE
     Route: 002
  15. HYDROCORTISONE [Suspect]
     Active Substance: HYDROCORTISONE
     Indication: Rheumatoid arthritis
     Route: 050
  16. HYDROCORTISONE [Suspect]
     Active Substance: HYDROCORTISONE
     Route: 065
  17. HYDROCORTISONE [Suspect]
     Active Substance: HYDROCORTISONE
     Indication: Rheumatoid arthritis
     Route: 065
  18. HYDROCORTISONE [Suspect]
     Active Substance: HYDROCORTISONE
     Route: 065
  19. TRETINOIN [Suspect]
     Active Substance: TRETINOIN
     Indication: Product used for unknown indication
     Route: 065
  20. TRETINOIN [Suspect]
     Active Substance: TRETINOIN
     Route: 065
  21. ERYTHROMYCIN [Suspect]
     Active Substance: ERYTHROMYCIN
     Indication: Product used for unknown indication
     Route: 065
  22. LORAZEPAM [Suspect]
     Active Substance: LORAZEPAM
     Indication: Rheumatoid arthritis
     Route: 065
  23. LORAZEPAM [Suspect]
     Active Substance: LORAZEPAM
     Route: 065
  24. LORAZEPAM [Suspect]
     Active Substance: LORAZEPAM
     Route: 065
  25. MESALAMINE [Suspect]
     Active Substance: MESALAMINE
     Indication: Crohn^s disease
     Route: 065
  26. HYDROCORTISONE [Suspect]
     Active Substance: HYDROCORTISONE
     Indication: Rheumatoid arthritis
     Route: 048
  27. HYDROCORTISONE [Suspect]
     Active Substance: HYDROCORTISONE
     Route: 065
  28. DICLOFENAC [Suspect]
     Active Substance: DICLOFENAC
     Indication: Rheumatoid arthritis
     Route: 050
  29. DICLOFENAC [Suspect]
     Active Substance: DICLOFENAC
     Route: 050
  30. DICLOFENAC [Suspect]
     Active Substance: DICLOFENAC
     Route: 065
  31. DICLOFENAC DIETHYLAMINE [Suspect]
     Active Substance: DICLOFENAC DIETHYLAMINE
     Indication: Product used for unknown indication
     Route: 065
  32. DICLOFENAC POTASSIUM [Suspect]
     Active Substance: DICLOFENAC POTASSIUM
     Indication: Rheumatoid arthritis
     Route: 050
  33. DICLOFENAC POTASSIUM [Suspect]
     Active Substance: DICLOFENAC POTASSIUM
     Route: 050
  34. DICLOFENAC POTASSIUM [Suspect]
     Active Substance: DICLOFENAC POTASSIUM
     Route: 065
  35. DICLOFENAC SODIUM [Suspect]
     Active Substance: DICLOFENAC SODIUM
     Indication: Rheumatoid arthritis
     Route: 050
  36. DICLOFENAC SODIUM [Suspect]
     Active Substance: DICLOFENAC SODIUM
     Indication: Osteoarthritis
     Route: 065
  37. DICLOFENAC SODIUM [Suspect]
     Active Substance: DICLOFENAC SODIUM
     Indication: Inflammation
     Route: 065
  38. DEXAMETHASONE [Suspect]
     Active Substance: DEXAMETHASONE
     Indication: Rheumatoid arthritis
     Route: 048
  39. ALBUTEROL SULFATE [Suspect]
     Active Substance: ALBUTEROL SULFATE
     Indication: Product used for unknown indication
     Route: 065
  40. ALBUTEROL SULFATE [Suspect]
     Active Substance: ALBUTEROL SULFATE
     Route: 065
  41. HYDROCORTISONE ACETATE [Suspect]
     Active Substance: HYDROCORTISONE ACETATE
     Indication: Rheumatoid arthritis
     Route: 065
  42. HYDROCORTISONE ACETATE [Suspect]
     Active Substance: HYDROCORTISONE ACETATE
     Route: 065
  43. HYDROCORTISONE ACETATE [Suspect]
     Active Substance: HYDROCORTISONE ACETATE
     Route: 061
  44. RAMIPRIL [Suspect]
     Active Substance: RAMIPRIL
     Indication: Product used for unknown indication
     Route: 065
  45. TRAMADOL HYDROCHLORIDE [Suspect]
     Active Substance: TRAMADOL HYDROCHLORIDE
     Indication: Product used for unknown indication
     Route: 065
  46. TRIAMCINOLONE ACETONIDE [Suspect]
     Active Substance: TRIAMCINOLONE ACETONIDE
     Indication: Rheumatoid arthritis
     Route: 065
  47. CORTISONE [Suspect]
     Active Substance: CORTISONE
     Indication: Rheumatoid arthritis
     Route: 050
  48. TOPICORT [Suspect]
     Active Substance: DESOXIMETASONE
     Indication: Rheumatoid arthritis
     Route: 050
  49. TOPICORT [Suspect]
     Active Substance: DESOXIMETASONE
     Route: 050
  50. TOPICORT [Suspect]
     Active Substance: DESOXIMETASONE
     Route: 050
  51. TOPICORT [Suspect]
     Active Substance: DESOXIMETASONE
     Route: 050
  52. TOPICORT [Suspect]
     Active Substance: DESOXIMETASONE
     Route: 050
  53. TOPICORT [Suspect]
     Active Substance: DESOXIMETASONE
     Route: 050
  54. TOPICORT [Suspect]
     Active Substance: DESOXIMETASONE
     Route: 050
  55. TOPICORT [Suspect]
     Active Substance: DESOXIMETASONE
     Route: 050
  56. DESOXIMETASONE [Suspect]
     Active Substance: DESOXIMETASONE
     Indication: Rheumatoid arthritis
     Route: 050
  57. DESOXIMETASONE [Suspect]
     Active Substance: DESOXIMETASONE
     Route: 050
  58. DESOXIMETASONE [Suspect]
     Active Substance: DESOXIMETASONE
     Route: 050
  59. DESOXIMETASONE [Suspect]
     Active Substance: DESOXIMETASONE
     Route: 050
  60. DESOXIMETASONE [Suspect]
     Active Substance: DESOXIMETASONE
     Route: 050
  61. DESOXIMETASONE [Suspect]
     Active Substance: DESOXIMETASONE
     Route: 061
  62. DESOXIMETASONE [Suspect]
     Active Substance: DESOXIMETASONE
     Route: 065
  63. DESOXIMETASONE [Suspect]
     Active Substance: DESOXIMETASONE
     Route: 065

REACTIONS (99)
  - Respiratory tract infection [Fatal]
  - Glossodynia [Fatal]
  - Pemphigus [Fatal]
  - Systemic lupus erythematosus [Fatal]
  - Drug intolerance [Fatal]
  - Back injury [Fatal]
  - Infusion related reaction [Fatal]
  - Rheumatoid arthritis [Fatal]
  - General physical health deterioration [Fatal]
  - Rheumatic fever [Fatal]
  - Alopecia [Fatal]
  - Hypersensitivity [Fatal]
  - Colitis ulcerative [Fatal]
  - Irritable bowel syndrome [Fatal]
  - Dizziness [Fatal]
  - Fibromyalgia [Fatal]
  - Tachycardia [Fatal]
  - Taste disorder [Fatal]
  - Mobility decreased [Fatal]
  - Musculoskeletal stiffness [Fatal]
  - Hypoaesthesia [Fatal]
  - Psoriatic arthropathy [Fatal]
  - Sciatica [Fatal]
  - Type 2 diabetes mellitus [Fatal]
  - Coeliac disease [Fatal]
  - Confusional state [Fatal]
  - Folliculitis [Fatal]
  - Impaired healing [Fatal]
  - Wound infection [Fatal]
  - Urticaria [Fatal]
  - Sleep disorder due to general medical condition, insomnia type [Fatal]
  - Stomatitis [Fatal]
  - Muscle injury [Fatal]
  - Asthma [Fatal]
  - Autoimmune disorder [Fatal]
  - Porphyria acute [Fatal]
  - Deep vein thrombosis postoperative [Fatal]
  - Onychomycosis [Fatal]
  - Gait inability [Fatal]
  - Lower limb fracture [Fatal]
  - Ill-defined disorder [Fatal]
  - Hip arthroplasty [Fatal]
  - Knee arthroplasty [Fatal]
  - Road traffic accident [Fatal]
  - Osteoarthritis [Fatal]
  - Amnesia [Fatal]
  - Breast cancer stage III [Fatal]
  - Delirium [Fatal]
  - Depression [Fatal]
  - Dislocation of vertebra [Fatal]
  - Grip strength decreased [Fatal]
  - Disability [Not Recovered/Not Resolved]
  - Helicobacter infection [Fatal]
  - Migraine [Fatal]
  - Pain in extremity [Fatal]
  - Pericarditis [Fatal]
  - Pneumonia [Fatal]
  - Pulmonary fibrosis [Fatal]
  - Anxiety [Fatal]
  - Bursitis [Fatal]
  - Ear infection [Fatal]
  - Exostosis [Fatal]
  - Foot deformity [Fatal]
  - Laryngitis [Fatal]
  - Lupus-like syndrome [Fatal]
  - Retinitis [Fatal]
  - Bone erosion [Fatal]
  - Pancreatitis [Fatal]
  - Joint dislocation [Fatal]
  - Malaise [Fatal]
  - Crohn^s disease [Fatal]
  - Visual impairment [Fatal]
  - Oedema peripheral [Fatal]
  - Osteoporosis [Fatal]
  - Lung disorder [Fatal]
  - Night sweats [Fatal]
  - Dry mouth [Fatal]
  - Eye injury [Fatal]
  - Bronchitis [Fatal]
  - Lupus vulgaris [Fatal]
  - Psoriasis [Fatal]
  - Epilepsy [Fatal]
  - Death neonatal [Not Recovered/Not Resolved]
  - Fluid retention [Fatal]
  - Rash pruritic [Fatal]
  - Hepatic cirrhosis [Fatal]
  - Duodenal ulcer perforation [Fatal]
  - Liver injury [Fatal]
  - Liver function test increased [Fatal]
  - Drug ineffective [Fatal]
  - Live birth [Fatal]
  - Underdose [Fatal]
  - Prescribed underdose [Fatal]
  - Contraindicated product administered [Fatal]
  - Off label use [Fatal]
  - Prescribed overdose [Fatal]
  - Medication error [Fatal]
  - Exposure during pregnancy [Fatal]
  - Product quality issue [Fatal]
